FAERS Safety Report 11392072 (Version 3)
Quarter: 2015Q3

REPORT INFORMATION
  Report Type: Spontaneous
  Country: US (occurrence: US)
  Receive Date: 20150818
  Receipt Date: 20150928
  Transmission Date: 20151125
  Serious: No
  Sender: FDA-Public Use
  Company Number: US-GLAXOSMITHKLINE-US2015117163

PATIENT
  Sex: Male

DRUGS (1)
  1. NICODERM CQ [Suspect]
     Active Substance: NICOTINE
     Indication: PRODUCT USED FOR UNKNOWN INDICATION
     Dosage: 21 MG, UNK
     Dates: end: 20150810

REACTIONS (5)
  - Application site burn [Recovered/Resolved]
  - Application site rash [Recovered/Resolved]
  - Application site exfoliation [Recovered/Resolved]
  - Product quality issue [Unknown]
  - Discomfort [Recovered/Resolved]
